FAERS Safety Report 7240263-0 (Version None)
Quarter: 2011Q1

REPORT INFORMATION
  Report Type: 
  Country: None (occurrence: None)
  Receive Date: 20110113
  Receipt Date: 20101230
  Transmission Date: 20110831
  Serious: Yes (Other)
  Sender: FDA-Public Use
  Company Number: 024025

PATIENT
  Sex: Male
  Weight: 98 kg

DRUGS (13)
  1. SULPIRIDE [Concomitant]
  2. NEUPRO [Suspect]
     Indication: PARKINSON'S DISEASE
     Dosage: (2 MG QD TRANSDERMAL), (4 MG QD TRANSDERMAL), (8 MG QD TRANSDERMAL)
     Route: 062
     Dates: start: 20101021, end: 20101027
  3. NEUPRO [Suspect]
     Indication: PARKINSON'S DISEASE
     Dosage: (2 MG QD TRANSDERMAL), (4 MG QD TRANSDERMAL), (8 MG QD TRANSDERMAL)
     Route: 062
     Dates: start: 20101028, end: 20101104
  4. NEUPRO [Suspect]
     Indication: PARKINSON'S DISEASE
     Dosage: (2 MG QD TRANSDERMAL), (4 MG QD TRANSDERMAL), (8 MG QD TRANSDERMAL)
     Route: 062
     Dates: start: 20101105
  5. CILAZAPRIL [Concomitant]
  6. HYDROCHLOROTHIAZIDE [Concomitant]
  7. ATENOLOL [Concomitant]
  8. GANATON [Concomitant]
  9. EGILOK [Concomitant]
  10. GODASAL /01574801/ [Concomitant]
  11. PANTOPRAZOLE [Concomitant]
  12. TULIP /00435301/ [Concomitant]
  13. DETRALEX [Concomitant]

REACTIONS (2)
  - PANCREATITIS NECROTISING [None]
  - CHOLANGIOLITIS [None]
